FAERS Safety Report 6793646-7 (Version None)
Quarter: 2010Q2

REPORT INFORMATION
  Report Type: 
  Country: None (occurrence: None)
  Receive Date: 20100624
  Receipt Date: 20090302
  Transmission Date: 20101027
  Serious: No
  Sender: FDA-Public Use
  Company Number: US-PFIZER INC-2008152994

PATIENT
  Sex: Female
  Weight: 77 kg

DRUGS (2)
  1. RELPAX [Suspect]
     Indication: MIGRAINE
     Dosage: 40 MG, UNK
  2. PREMPRO [Concomitant]
     Dosage: UNK

REACTIONS (2)
  - CHEST DISCOMFORT [None]
  - DYSPNOEA [None]
